FAERS Safety Report 15180765 (Version 1)
Quarter: 2018Q3

REPORT INFORMATION
  Report Type: Spontaneous
  Country: US (occurrence: US)
  Receive Date: 20180723
  Receipt Date: 20180723
  Transmission Date: 20181010
  Serious: Yes (Life-Threatening, Other)
  Sender: FDA-Public Use
  Company Number: US-PFIZER INC-2018289367

PATIENT
  Age: 76 Year
  Sex: Female

DRUGS (7)
  1. TRETINOIN. [Suspect]
     Active Substance: TRETINOIN
     Dosage: MAINTENANCE THERAPY ? ATRA 50 MG TWICE DAILY
  2. IDARUBICIN HCL [Suspect]
     Active Substance: IDARUBICIN HYDROCHLORIDE
     Dosage: CONSOLIDATION CHEMOTHERAPY CONSISTING OF INTERMITTENT IDARUBICIN
  3. IDARUBICIN HCL [Suspect]
     Active Substance: IDARUBICIN HYDROCHLORIDE
     Indication: ACUTE PROMYELOCYTIC LEUKAEMIA
     Dosage: INDUCTION CHEMOTHERAPY
  4. TRETINOIN. [Suspect]
     Active Substance: TRETINOIN
     Dosage: CONSOLIDATION CHEMOTHERAPY CONSISTING OF INTERMITTENT ATRA
  5. METHOTREXATE SODIUM. [Suspect]
     Active Substance: METHOTREXATE SODIUM
     Indication: ACUTE PROMYELOCYTIC LEUKAEMIA
     Dosage: MAINTENANCE THERAPY ? 15 MG WEEKLY
  6. ARSENIC TRIOXIDE [Suspect]
     Active Substance: ARSENIC TRIOXIDE
     Indication: ACUTE PROMYELOCYTIC LEUKAEMIA
     Dosage: CONSOLIDATION CONTINUED WITH ARSENIC TRIOXIDE (ATO) 45 MG DAILY FOR 5 DAYS PER WEEK FOR AN ABBREV...
  7. TRETINOIN. [Suspect]
     Active Substance: TRETINOIN
     Indication: ACUTE PROMYELOCYTIC LEUKAEMIA
     Dosage: 45 MG/M2 /DAY ?INDUCTION CHEMOTHERAPY

REACTIONS (3)
  - Chromosomal deletion [Unknown]
  - Second primary malignancy [Unknown]
  - Haematopoietic neoplasm [Unknown]
